FAERS Safety Report 7016048-7 (Version None)
Quarter: 2010Q3

REPORT INFORMATION
  Report Type: 
  Country: None (occurrence: None)
  Receive Date: 20100927
  Receipt Date: 20100917
  Transmission Date: 20110219
  Serious: Yes (Hospitalization)
  Sender: FDA-Public Use
  Company Number: GXKR2010CA10650

PATIENT
  Age: 72 Day
  Sex: Male
  Weight: 3.3 kg

DRUGS (4)
  1. VANCOMYCIN (NGX) [Suspect]
     Indication: OSTEOMYELITIS
     Dosage: 6000 MG, INADVERTENTLY ADMINISTERED OVER 5 DAYS
     Route: 065
  2. CEFOTAXIME SODIUM [Concomitant]
     Dosage: 150 MG/KG, TID
     Route: 042
  3. AMBISOME [Concomitant]
     Indication: FUNGAL INFECTION
     Dosage: 1 MG/KG/DAY
     Route: 042
  4. FLUCONAZOLE [Concomitant]
     Dosage: 6 MG/KG, QD
     Route: 042

REACTIONS (4)
  - ACCIDENTAL OVERDOSE [None]
  - DIALYSIS [None]
  - DRUG DISPENSING ERROR [None]
  - RENAL IMPAIRMENT [None]
